FAERS Safety Report 9831202 (Version 3)
Quarter: 2014Q1

REPORT INFORMATION
  Report Type: Report from Study
  Country: FR (occurrence: FR)
  Receive Date: 20140121
  Receipt Date: 20140131
  Transmission Date: 20141002
  Serious: Yes (Hospitalization, Other)
  Sender: FDA-Public Use
  Company Number: FR-ROCHE-1161426

PATIENT
  Age: 63 Year
  Sex: Female

DRUGS (5)
  1. RITUXIMAB [Suspect]
     Indication: RHEUMATOID ARTHRITIS
     Route: 042
     Dates: start: 20060130
  2. AZATHIOPRINE [Concomitant]
  3. CORTANCYL [Concomitant]
     Route: 065
     Dates: start: 20061026
  4. TRIFLUCAN [Concomitant]
     Route: 065
     Dates: start: 20070918, end: 20071004
  5. IZILOX [Concomitant]
     Route: 065
     Dates: start: 20070918, end: 20071004

REACTIONS (7)
  - Bronchopneumonia [Recovered/Resolved]
  - Nodule [Recovered/Resolved]
  - Dermo-hypodermitis [Not Recovered/Not Resolved]
  - Vein disorder [Not Recovered/Not Resolved]
  - Biliary colic [Unknown]
  - Urinary tract infection [Recovered/Resolved]
  - Haematoma [Recovered/Resolved]
